FAERS Safety Report 7534318-0 (Version None)
Quarter: 2011Q2

REPORT INFORMATION
  Report Type: 
  Country: None (occurrence: None)
  Receive Date: 20110608
  Receipt Date: 20110510
  Transmission Date: 20111010
  Serious: No
  Sender: FDA-Public Use
  Company Number: US-AMGEN-USASP2011024185

PATIENT

DRUGS (2)
  1. CALCIUM CARBONATE [Concomitant]
  2. XGEVA [Suspect]
     Indication: BREAST CANCER METASTATIC

REACTIONS (1)
  - HYPOCALCAEMIA [None]
